FAERS Safety Report 6793030-6 (Version None)
Quarter: 2010Q2

REPORT INFORMATION
  Report Type: 
  Country: None (occurrence: None)
  Receive Date: 20100624
  Receipt Date: 20081223
  Transmission Date: 20101027
  Serious: Yes (Other)
  Sender: FDA-Public Use
  Company Number: US-PFIZER INC-2008093157

PATIENT
  Sex: Female
  Weight: 98 kg

DRUGS (7)
  1. GEODON [Suspect]
     Indication: BIPOLAR DISORDER
     Route: 048
  2. GEODON [Suspect]
     Indication: AFFECTIVE DISORDER
  3. ATENOLOL [Concomitant]
     Route: 048
  4. NEURONTIN [Concomitant]
     Route: 048
  5. TOPAMAX [Concomitant]
     Route: 048
  6. PRILOSEC [Concomitant]
     Route: 048
  7. THYROID TAB [Concomitant]
     Route: 048

REACTIONS (7)
  - ALANINE AMINOTRANSFERASE ABNORMAL [None]
  - BLOOD PRESSURE INCREASED [None]
  - BLOOD THYROID STIMULATING HORMONE INCREASED [None]
  - BLOOD TRIGLYCERIDES INCREASED [None]
  - PAIN [None]
  - PALPITATIONS [None]
  - WITHDRAWAL SYNDROME [None]
